FAERS Safety Report 19568910 (Version 2)
Quarter: 2021Q3

REPORT INFORMATION
  Report Type: Report from Study
  Country: US (occurrence: US)
  Receive Date: 20210715
  Receipt Date: 20210805
  Transmission Date: 20211014
  Serious: Yes (Other)
  Sender: FDA-Public Use
  Company Number: US-HORIZON THERAPEUTICS-HZN-2021-004343

PATIENT

DRUGS (2)
  1. KRYSTEXXA [Suspect]
     Active Substance: PEGLOTICASE
     Dosage: UNK
     Route: 065
     Dates: start: 20210707
  2. KRYSTEXXA [Suspect]
     Active Substance: PEGLOTICASE
     Indication: GOUT
     Dosage: UNK
     Route: 065
     Dates: start: 20210609

REACTIONS (7)
  - Cyanosis [Unknown]
  - Loss of consciousness [Recovering/Resolving]
  - Blood uric acid increased [Unknown]
  - Agonal respiration [Unknown]
  - Hypertension [Unknown]
  - Feeling abnormal [Unknown]
  - Incontinence [Unknown]

NARRATIVE: CASE EVENT DATE: 20210707
